FAERS Safety Report 20068930 (Version 1)
Quarter: 2021Q4

REPORT INFORMATION
  Report Type: Spontaneous
  Country: US (occurrence: US)
  Receive Date: 20211115
  Receipt Date: 20211115
  Transmission Date: 20220304
  Serious: No
  Sender: FDA-Public Use
  Company Number: US-PFIZER INC-2021443573

PATIENT
  Age: 1 Year
  Sex: Male
  Weight: 10.7 kg

DRUGS (1)
  1. EUCRISA [Suspect]
     Active Substance: CRISABOROLE
     Indication: Eczema
     Dosage: UNK, 2X/DAY (APPLY THIN LAYER ON THE SKIN)
     Dates: start: 20210310, end: 20210310

REACTIONS (1)
  - Chemical burn of skin [Recovering/Resolving]

NARRATIVE: CASE EVENT DATE: 20210310
